FAERS Safety Report 9688803 (Version 2)
Quarter: 2013Q4

REPORT INFORMATION
  Report Type: Spontaneous
  Country: IN (occurrence: None)
  Receive Date: 20131112
  Receipt Date: 20131205
  Transmission Date: 20140711
  Serious: Yes (Other)
  Sender: FDA-Public Use
  Company Number: AUR-APL-2013-09372

PATIENT
  Sex: Female

DRUGS (1)
  1. PIOGLITAZONE (PIOGLITAZONE) [Suspect]
     Indication: TYPE 2 DIABETES MELLITUS

REACTIONS (1)
  - Bladder cancer [None]
